FAERS Safety Report 5043095-7 (Version None)
Quarter: 2006Q3

REPORT INFORMATION
  Report Type: 
  Country: None (occurrence: None)
  Receive Date: 20060705
  Receipt Date: 20060331
  Transmission Date: 20061208
  Serious: Yes (Hospitalization)
  Sender: FDA-Public Use
  Company Number: PHBS2006JP05013

PATIENT
  Age: 50 Year
  Sex: Male
  Weight: 79 kg

DRUGS (5)
  1. GLEEVEC [Suspect]
     Indication: CHRONIC MYELOID LEUKAEMIA
     Dosage: 100 MG, QD
     Route: 048
     Dates: start: 20060405, end: 20060412
  2. GLEEVEC [Suspect]
     Dosage: 400 MG, QD
     Route: 048
     Dates: start: 20060413
  3. GLEEVEC [Suspect]
     Dosage: 400 MG, QD
     Route: 048
     Dates: start: 20020201, end: 20060330
  4. CARDENALIN [Concomitant]
     Indication: HYPERTENSION
     Dosage: 1 MG/D
     Route: 048
     Dates: start: 20050901
  5. NU LOTAN [Concomitant]
     Indication: HYPERTENSION
     Dosage: 50 MG/D
     Route: 048
     Dates: start: 20050901

REACTIONS (6)
  - BLOOD CREATINE PHOSPHOKINASE INCREASED [None]
  - OEDEMA [None]
  - PAIN IN EXTREMITY [None]
  - RASH [None]
  - RHABDOMYOLYSIS [None]
  - STOMATITIS [None]
